FAERS Safety Report 13526142 (Version 1)
Quarter: 2017Q2

REPORT INFORMATION
  Report Type: Report from Study
  Country: US (occurrence: US)
  Receive Date: 20170509
  Receipt Date: 20170509
  Transmission Date: 20170830
  Serious: Yes (Hospitalization)
  Sender: FDA-Public Use
  Company Number: US-TORRENT-00002722

PATIENT
  Age: 17 Year
  Sex: Male

DRUGS (5)
  1. BENZATROPINE MESILATE [Concomitant]
     Active Substance: BENZTROPINE
  2. FLUOXETINE [Suspect]
     Active Substance: FLUOXETINE HYDROCHLORIDE
  3. RISPERIDONE. [Suspect]
     Active Substance: RISPERIDONE
  4. HALOPERIDOL. [Suspect]
     Active Substance: HALOPERIDOL
  5. QUETIAPINE. [Suspect]
     Active Substance: QUETIAPINE

REACTIONS (3)
  - Abnormal behaviour [Unknown]
  - Treatment noncompliance [Unknown]
  - Aggression [Unknown]
